FAERS Safety Report 20254703 (Version 2)
Quarter: 2025Q4

REPORT INFORMATION
  Report Type: Spontaneous
  Country: EU (occurrence: EU)
  Receive Date: 20211230
  Receipt Date: 20251217
  Transmission Date: 20260118
  Serious: Yes (Death, Hospitalization, Other)
  Sender: AMGEN
  Company Number: EU-AMGEN-ITASP2021205017

PATIENT

DRUGS (2)
  1. ADALIMUMAB [Suspect]
     Active Substance: ADALIMUMAB
     Indication: Arthritis
     Dosage: UNK
     Route: 065
  2. ETANERCEPT [Suspect]
     Active Substance: ETANERCEPT
     Indication: Arthritis
     Dosage: UNK
     Route: 065

REACTIONS (14)
  - Disseminated aspergillosis [Fatal]
  - Renal failure [Fatal]
  - Haemorrhage [Fatal]
  - Haemophagocytic lymphohistiocytosis [Unknown]
  - Evans syndrome [Unknown]
  - Sepsis [Unknown]
  - Pneumonia [Unknown]
  - Hodgkin^s disease [Unknown]
  - Therapeutic product effect incomplete [Unknown]
  - C-reactive protein increased [Unknown]
  - Red blood cell sedimentation rate increased [Unknown]
  - Chondropathy [Unknown]
  - Bone erosion [Unknown]
  - Infection [Unknown]
